FAERS Safety Report 6770337-X (Version None)
Quarter: 2010Q2

REPORT INFORMATION
  Report Type: 
  Country: None (occurrence: None)
  Receive Date: 20100615
  Receipt Date: 20100603
  Transmission Date: 20101027
  Serious: Yes (Other)
  Sender: FDA-Public Use
  Company Number: EE-PFIZER INC-2010038887

PATIENT
  Age: 44 Year
  Sex: Female
  Weight: 90 kg

DRUGS (7)
  1. LYRICA [Suspect]
     Indication: DEPRESSION
     Dosage: 75 MG, 1X/DAY
     Route: 048
     Dates: start: 20070701
  2. LYRICA [Suspect]
     Indication: NEURALGIA
     Dosage: 75 MG, 2X/DAY
     Route: 048
  3. LYRICA [Suspect]
     Dosage: 75 MG, 1X/DAY
     Route: 048
     Dates: end: 20100401
  4. CYMBALTA [Suspect]
     Dosage: 30MG DAILY
     Dates: start: 20100304, end: 20100405
  5. CYMBALTA [Suspect]
     Dosage: 60MG DAILY
     Dates: start: 20100405
  6. ZOLOFT [Concomitant]
     Dosage: 50 MG, UNK
     Route: 048
     Dates: start: 20061201, end: 20100301
  7. RIVOTRIL [Concomitant]
     Dosage: 1/8 OF 2MG/3X/DAY
     Route: 048
     Dates: start: 20060101

REACTIONS (3)
  - MUSCLE SPASMS [None]
  - MUSCULAR WEAKNESS [None]
  - PARALYSIS [None]
